FAERS Safety Report 4497980-5 (Version None)
Quarter: 2004Q4

REPORT INFORMATION
  Report Type: 
  Country: None (occurrence: None)
  Receive Date: 20041105
  Receipt Date: 20041025
  Transmission Date: 20050328
  Serious: Yes (Hospitalization)
  Sender: FDA-Public Use
  Company Number: 209906

PATIENT
  Age: 49 Year
  Sex: Female

DRUGS (19)
  1. AVASTIN [Suspect]
     Indication: COLORECTAL CANCER METASTATIC
     Dosage: 420 MG, INTRAVENOUS
     Route: 042
     Dates: start: 20040802
  2. ERLOTINIB (ERLOTINIB) TABLET, 100MG [Suspect]
     Indication: COLORECTAL CANCER METASTATIC
     Dosage: 150 MG, ORAL
     Route: 048
     Dates: start: 20040802, end: 20041004
  3. OXALIPLATIN (OXALIPLATIN) [Suspect]
     Indication: COLORECTAL CANCER METASTATIC
     Dosage: 130 MG, INTRAVENOUS
     Route: 042
     Dates: start: 20040802
  4. FLUOROURACIL [Suspect]
     Indication: COLORECTAL CANCER METASTATIC
     Dosage: 600 MG, IV BOLUS
     Route: 040
     Dates: start: 20040802
  5. 5-FLUOROURACIL REGIMEN #2 [Suspect]
     Indication: COLORECTAL CANCER METASTATIC
     Dosage: 1000 MG, INTRAVENOUS
     Route: 042
     Dates: start: 20040802
  6. LEUCOVORIN (LEUCOVORIN CALCIUM) [Suspect]
     Indication: COLORECTAL CANCER METASTATIC
     Dosage: 400 MG, INTRAVENOUS
     Route: 042
     Dates: start: 20040802
  7. PAREGORIQUE (BENZOIC ACID, CAMPHOR, ANISE, OPIUM, POWDERED) [Suspect]
  8. ANDROGEL [Concomitant]
  9. KYTRIL [Concomitant]
  10. DECADRON [Concomitant]
  11. LOMOTIL [Concomitant]
  12. IMODIUM [Concomitant]
  13. ZOFRAN [Concomitant]
  14. MEGACE [Concomitant]
  15. COMPAZINE [Concomitant]
  16. ASPIRIN [Concomitant]
  17. IRON (IRON NOS) [Concomitant]
  18. TRICOR [Concomitant]
  19. SANDOSTATIN LAR (OCTREOTIDE ACETATE) [Concomitant]

REACTIONS (3)
  - DIARRHOEA [None]
  - HEART RATE INCREASED [None]
  - PULMONARY EMBOLISM [None]
